FAERS Safety Report 9016881 (Version 1)
Quarter: 2013Q1

REPORT INFORMATION
  Report Type: Spontaneous
  Country: US (occurrence: None)
  Receive Date: 20130116
  Receipt Date: 20130116
  Transmission Date: 20140127
  Serious: No
  Sender: FDA-Public Use
  Company Number: US-HORIZON-DUE-0007-2012

PATIENT
  Age: 64 Year
  Sex: Female
  Weight: 68 kg

DRUGS (6)
  1. DUEXIS [Suspect]
     Indication: ARTHRALGIA
     Dosage: 1 DF 3 TIMES A DAY,  ORAL
     Route: 048
     Dates: start: 20120625
  2. LIPITOR [Concomitant]
  3. ALLEGRA [Concomitant]
  4. PRISOLEC [Concomitant]
  5. FISH OIL [Concomitant]
  6. VITAMINS [Concomitant]

REACTIONS (2)
  - Accidental overdose [None]
  - No adverse event [None]
